FAERS Safety Report 10185510 (Version 2)
Quarter: 2014Q2

REPORT INFORMATION
  Report Type: Spontaneous
  Country: GB (occurrence: GB)
  Receive Date: 20140521
  Receipt Date: 20140611
  Transmission Date: 20141212
  Serious: Yes (Hospitalization)
  Sender: FDA-Public Use
  Company Number: GB-AMGEN INC.-GBRSP2014036951

PATIENT
  Age: 64 Year
  Sex: Female

DRUGS (4)
  1. NEULASTA [Suspect]
     Indication: NEUTROPENIA
     Dosage: 6 MG IN 0.6 ML FORTNIGHTLY DAY AFTER CHEMOTHERAPY
     Route: 065
     Dates: start: 20140409
  2. NEUPOGEN [Suspect]
     Indication: NEUTROPENIA
     Dosage: UNK
     Route: 065
     Dates: start: 201405
  3. DOXORUBICIN [Concomitant]
     Indication: BREAST CANCER
     Dosage: UNK
     Dates: start: 20140407
  4. CYCLOPHOSPHAMIDE [Concomitant]
     Indication: BREAST CANCER
     Dosage: UNK
     Dates: start: 20140407

REACTIONS (2)
  - Neutropenia [Recovered/Resolved]
  - Drug ineffective [Unknown]
